FAERS Safety Report 7914056-2 (Version None)
Quarter: 2011Q4

REPORT INFORMATION
  Report Type: 
  Country: None (occurrence: None)
  Receive Date: 20111114
  Receipt Date: 20111114
  Transmission Date: 20120403
  Serious: Yes (Hospitalization)
  Sender: FDA-Public Use
  Company Number: None

PATIENT
  Sex: Male
  Weight: 58.2 kg

DRUGS (3)
  1. BEVACIZUMAB (RHUMAB VEGF) [Suspect]
     Dosage: 900 MG
  2. ERBITUX [Suspect]
     Dosage: 425 MG
  3. CARBOPLATIN [Suspect]
     Dosage: 486 MG

REACTIONS (8)
  - NEUTROPENIA [None]
  - HYPONATRAEMIA [None]
  - COUGH [None]
  - PULMONARY SEPSIS [None]
  - LEUKOPENIA [None]
  - HYPOKALAEMIA [None]
  - DYSPNOEA [None]
  - ANAEMIA [None]
